FAERS Safety Report 6386252-X (Version None)
Quarter: 2009Q4

REPORT INFORMATION
  Report Type: 
  Country: None (occurrence: None)
  Receive Date: 20091002
  Receipt Date: 20091002
  Transmission Date: 20100525
  Serious: Yes (Other)
  Sender: FDA-Public Use
  Company Number: US-PFIZER INC-2005112435

PATIENT
  Sex: Female
  Weight: 62.6 kg

DRUGS (3)
  1. NEURONTIN [Suspect]
     Indication: DEPRESSION
     Dosage: UNK
     Route: 065
     Dates: start: 20020101
  2. KLONOPIN [Concomitant]
     Dosage: UNK
     Route: 065
  3. EFFEXOR XR [Concomitant]
     Dosage: UNK
     Route: 065

REACTIONS (8)
  - BACK DISORDER [None]
  - DRUG INEFFECTIVE [None]
  - FATIGUE [None]
  - HEPATITIS C [None]
  - NASOPHARYNGITIS [None]
  - RASH [None]
  - VASCULITIS [None]
  - WEIGHT INCREASED [None]
